FAERS Safety Report 21113614 (Version 1)
Quarter: 2022Q3

REPORT INFORMATION
  Report Type: Spontaneous
  Country: US (occurrence: US)
  Receive Date: 20220721
  Receipt Date: 20220721
  Transmission Date: 20221027
  Serious: Yes (Hospitalization, Other)
  Sender: FDA-Public Use
  Company Number: US-AZURITY PHARMACEUTICALS, INC.-US-2022ARB001570

PATIENT
  Age: 21 Year
  Sex: Female

DRUGS (1)
  1. BACLOFEN [Suspect]
     Active Substance: BACLOFEN
     Indication: Back pain
     Dosage: AS NEEDED THROUGHOUT THE DAY

REACTIONS (8)
  - Toxicity to various agents [Unknown]
  - Lethargy [Unknown]
  - Loss of consciousness [Unknown]
  - Cognitive disorder [Unknown]
  - Respiratory depression [Unknown]
  - Dizziness [Unknown]
  - Hallucinations, mixed [Unknown]
  - Treatment noncompliance [Unknown]
